FAERS Safety Report 15347168 (Version 2)
Quarter: 2018Q3

REPORT INFORMATION
  Report Type: Spontaneous
  Country: JP (occurrence: JP)
  Receive Date: 20180904
  Receipt Date: 20180914
  Transmission Date: 20181010
  Serious: Yes (Hospitalization)
  Sender: FDA-Public Use
  Company Number: JP-009507513-1705JPN001081J

PATIENT
  Age: 59 Year
  Sex: Male
  Weight: 73 kg

DRUGS (2)
  1. KEYTRUDA [Suspect]
     Active Substance: PEMBROLIZUMAB
     Indication: SUPERFICIAL SPREADING MELANOMA STAGE UNSPECIFIED
     Dosage: 2 MG/KG, Q3W
     Route: 041
     Dates: start: 20170417
  2. E KEPPRA [Concomitant]
     Active Substance: LEVETIRACETAM
     Indication: PROPHYLAXIS
     Dosage: 500 MG, BID
     Route: 048
     Dates: start: 20170128

REACTIONS (2)
  - Post procedural infection [Recovered/Resolved]
  - Blood thyroid stimulating hormone decreased [Recovered/Resolved]

NARRATIVE: CASE EVENT DATE: 201705
